FAERS Safety Report 7192099-7 (Version None)
Quarter: 2010Q4

REPORT INFORMATION
  Report Type: 
  Country: None (occurrence: None)
  Receive Date: 20101223
  Receipt Date: 20100630
  Transmission Date: 20110411
  Serious: Yes (Other)
  Sender: FDA-Public Use
  Company Number: US-BAYER-201028847NA

PATIENT
  Sex: Female
  Weight: 75 kg

DRUGS (15)
  1. YAZ [Suspect]
     Route: 048
     Dates: start: 20070525, end: 20071209
  2. YAZ [Suspect]
     Route: 048
     Dates: start: 20080107, end: 20081012
  3. YAZ [Suspect]
     Route: 048
     Dates: start: 20090417, end: 20090902
  4. YASMIN [Suspect]
     Route: 048
     Dates: start: 20050401, end: 20070302
  5. IBUPROFEN [Concomitant]
  6. COPAXONE [Concomitant]
     Indication: MULTIPLE SCLEROSIS
  7. BACLOFEN [Concomitant]
     Indication: MULTIPLE SCLEROSIS
  8. AMANTADINE [Concomitant]
     Indication: MULTIPLE SCLEROSIS
  9. XANAX [Concomitant]
     Indication: ANXIETY
  10. PROVIGIL [Concomitant]
     Indication: MULTIPLE SCLEROSIS
  11. ASPIRIN [Concomitant]
     Route: 048
     Dates: start: 19991130
  12. ASPIRIN [Concomitant]
  13. MULTI-VITAMINS [Concomitant]
     Indication: MITRAL VALVE PROLAPSE
  14. TIZANIDINE [Concomitant]
  15. METFORMIN [Concomitant]
     Indication: POLYCYSTIC OVARIES

REACTIONS (9)
  - COELIAC DISEASE [None]
  - DEEP VEIN THROMBOSIS [None]
  - FATIGUE [None]
  - HYPERTENSION [None]
  - INJURY [None]
  - MITRAL VALVE PROLAPSE [None]
  - MULTIPLE SCLEROSIS [None]
  - TOXOPLASMOSIS [None]
  - VARICOSE VEIN [None]
